FAERS Safety Report 7585677-4 (Version None)
Quarter: 2011Q3

REPORT INFORMATION
  Report Type: 
  Country: None (occurrence: None)
  Receive Date: 20110701
  Receipt Date: 20110628
  Transmission Date: 20111222
  Serious: Yes (Hospitalization)
  Sender: FDA-Public Use
  Company Number: FR-SANOFI-AVENTIS-2011SA040776

PATIENT
  Age: 77 Year
  Sex: Male

DRUGS (10)
  1. RABEPRAZOLE SODIUM [Concomitant]
     Route: 048
  2. LASIX [Suspect]
     Route: 048
     Dates: end: 20110414
  3. CORDARONE [Suspect]
     Dosage: 200 MG DAILY FIVE DAYS A WEEK
     Route: 048
     Dates: end: 20110414
  4. NILOTINIB [Suspect]
     Route: 048
     Dates: end: 20110414
  5. AMLODIPINE [Concomitant]
     Route: 048
  6. ATORVASTATIN CALCIUM [Suspect]
     Route: 048
     Dates: end: 20110414
  7. PLAVIX [Concomitant]
     Route: 048
  8. CLINDAMYCIN HCL [Concomitant]
     Route: 048
  9. ATACAND [Suspect]
     Route: 048
     Dates: end: 20110414
  10. FUCIDINE CAP [Concomitant]
     Route: 048

REACTIONS (3)
  - BRADYARRHYTHMIA [None]
  - HYPERKALAEMIA [None]
  - RENAL FAILURE ACUTE [None]
